FAERS Safety Report 8432765-6 (Version None)
Quarter: 2012Q2

REPORT INFORMATION
  Report Type: 
  Country: None (occurrence: None)
  Receive Date: 20120323
  Receipt Date: 20110725
  Transmission Date: 20120825
  Serious: Yes (Other)
  Sender: FDA-Public Use
  Company Number: 163-21880-11071589

PATIENT
  Age: 70 Year
  Sex: Male

DRUGS (10)
  1. DECITABINE (DECITABINE) [Concomitant]
  2. PREDNISONE TAB [Concomitant]
  3. ARANESP [Concomitant]
  4. TESTOSTERONE [Concomitant]
  5. DACOGEN [Concomitant]
  6. REVLIMID [Suspect]
     Indication: MULTIPLE MYELOMA
     Dosage: 5 MG, 1 IN 1 D, PO ; 5 MG, 1 IN 1 D, PO
     Route: 048
     Dates: start: 20110125, end: 20110614
  7. REVLIMID [Suspect]
     Indication: MYELODYSPLASTIC SYNDROME
     Dosage: 5 MG, 1 IN 1 D, PO ; 5 MG, 1 IN 1 D, PO
     Route: 048
     Dates: start: 20110125, end: 20110614
  8. REVLIMID [Suspect]
     Indication: MULTIPLE MYELOMA
     Dosage: 5 MG, 1 IN 1 D, PO ; 5 MG, 1 IN 1 D, PO
     Route: 048
     Dates: start: 20101223
  9. REVLIMID [Suspect]
     Indication: MYELODYSPLASTIC SYNDROME
     Dosage: 5 MG, 1 IN 1 D, PO ; 5 MG, 1 IN 1 D, PO
     Route: 048
     Dates: start: 20101223
  10. NEUPOGEN [Concomitant]

REACTIONS (3)
  - HAEMOGLOBIN DECREASED [None]
  - PLATELET COUNT DECREASED [None]
  - WHITE BLOOD CELL COUNT DECREASED [None]
